FAERS Safety Report 9160002 (Version 1)
Quarter: 2013Q1

REPORT INFORMATION
  Report Type: Spontaneous
  Country: IT (occurrence: IT)
  Receive Date: 20130313
  Receipt Date: 20130313
  Transmission Date: 20140127
  Serious: Yes (Hospitalization)
  Sender: FDA-Public Use
  Company Number: PHHY2013IT018345

PATIENT
  Age: 46 Year
  Sex: Male

DRUGS (6)
  1. TEGRETOL [Suspect]
     Indication: CEREBELLAR ISCHAEMIA
     Dosage: 1600 MG, (TOT)
     Route: 048
     Dates: start: 20121222, end: 20121222
  2. NEBIVOLOL [Concomitant]
  3. OMEPRAZOLE [Concomitant]
  4. STILNOX [Concomitant]
  5. COUMADIN [Concomitant]
  6. FOLINA [Concomitant]

REACTIONS (3)
  - Drug abuse [Not Recovered/Not Resolved]
  - Dysarthria [Not Recovered/Not Resolved]
  - Nystagmus [Not Recovered/Not Resolved]
